FAERS Safety Report 11579627 (Version 2)
Quarter: 2015Q4

REPORT INFORMATION
  Report Type: Spontaneous
  Country: CA (occurrence: CA)
  Receive Date: 20150930
  Receipt Date: 20151006
  Transmission Date: 20160304
  Serious: Yes (Other)
  Sender: FDA-Public Use
  Company Number: PHHY2015CA116530

PATIENT
  Sex: Male

DRUGS (1)
  1. NEORAL [Suspect]
     Active Substance: CYCLOSPORINE
     Indication: RENAL TRANSPLANT
     Dosage: 50 MG, 4 TIMES PER DAY
     Route: 065
     Dates: start: 1998

REACTIONS (3)
  - Haematochezia [Unknown]
  - Mass [Unknown]
  - Haemoglobin decreased [Unknown]
